FAERS Safety Report 20357473 (Version 1)
Quarter: 2022Q1

REPORT INFORMATION
  Report Type: Spontaneous
  Country: US (occurrence: US)
  Receive Date: 20220120
  Receipt Date: 20220120
  Transmission Date: 20220423
  Serious: No
  Sender: FDA-Public Use
  Company Number: US-PERRIGO-21US024518

PATIENT
  Sex: Female

DRUGS (2)
  1. TRETINOIN [Suspect]
     Active Substance: TRETINOIN
     Indication: Product used for unknown indication
     Dosage: UNK
     Route: 061
     Dates: start: 202109
  2. TRETINOIN [Suspect]
     Active Substance: TRETINOIN
     Dosage: UNK
     Route: 061
     Dates: start: 202110

REACTIONS (1)
  - Skin discolouration [Unknown]

NARRATIVE: CASE EVENT DATE: 20210901
